FAERS Safety Report 9826843 (Version 1)
Quarter: 2014Q1

REPORT INFORMATION
  Report Type: Spontaneous
  Country: US (occurrence: None)
  Receive Date: 20140115
  Receipt Date: 20140115
  Transmission Date: 20141002
  Serious: Yes (Death)
  Sender: FDA-Public Use
  Company Number: PT14-001-AE

PATIENT
  Age: 66 Year
  Sex: Female

DRUGS (7)
  1. FOLIC ACID [Suspect]
     Indication: PRODUCT USED FOR UNKNOWN INDICATION
     Route: 048
  2. ADVAIR [Concomitant]
  3. PROAIR [Concomitant]
  4. SPIRIVA [Concomitant]
  5. ALBUTEROL [Concomitant]
  6. LEVOTHYROXINE [Concomitant]
  7. PREDNISONE [Concomitant]

REACTIONS (2)
  - Chronic obstructive pulmonary disease [None]
  - Respiratory arrest [None]
